FAERS Safety Report 5717344-3 (Version None)
Quarter: 2008Q2

REPORT INFORMATION
  Report Type: 
  Country: None (occurrence: None)
  Receive Date: 20080425
  Receipt Date: 20080417
  Transmission Date: 20081010
  Serious: Yes (Other)
  Sender: FDA-Public Use
  Company Number: DE-BAYER-200815272GPV

PATIENT
  Age: 16 Year
  Sex: Female
  Weight: 67 kg

DRUGS (1)
  1. YASMIN [Suspect]
     Indication: CONTRACEPTION
     Route: 048
     Dates: start: 20050401

REACTIONS (2)
  - ABDOMINAL PAIN LOWER [None]
  - JAUNDICE [None]
